FAERS Safety Report 9837864 (Version 1)
Quarter: 2014Q1

REPORT INFORMATION
  Report Type: Spontaneous
  Country: US (occurrence: None)
  Receive Date: 20140117
  Receipt Date: 20140117
  Transmission Date: 20141002
  Serious: No
  Sender: FDA-Public Use
  Company Number: None

PATIENT
  Age: 41 Year
  Sex: Female
  Weight: 54.43 kg

DRUGS (1)
  1. LIOTHYRONINE [Suspect]
     Indication: HYPOTHYROIDISM
     Dosage: 1  BID  ORAL
     Route: 048
     Dates: start: 20140101, end: 20140116

REACTIONS (2)
  - Headache [None]
  - Product substitution issue [None]
